FAERS Safety Report 8496130 (Version 2)
Quarter: 2013Q1

REPORT INFORMATION
  Report Type: Spontaneous
  Country: CH (occurrence: CH)
  Receive Date: 20120405
  Receipt Date: 20130320
  Transmission Date: 20140127
  Serious: Yes (Other)
  Sender: FDA-Public Use
  Company Number: CH-JNJFOC-20120402036

PATIENT
  Age: 24 Year
  Sex: Female

DRUGS (11)
  1. TRAMAL [Suspect]
     Indication: BACK PAIN
     Route: 048
     Dates: start: 20110817, end: 20110817
  2. ZALDIAR [Suspect]
     Indication: BACK PAIN
     Route: 048
     Dates: start: 20110817, end: 20110907
  3. BELARA [Suspect]
     Indication: CONTRACEPTION
     Route: 048
     Dates: start: 2010, end: 20120201
  4. KETESSE [Suspect]
     Indication: PRODUCT USED FOR UNKNOWN INDICATION
     Route: 065
     Dates: start: 20110817, end: 20110817
  5. SPIRICORT [Suspect]
     Indication: BACK PAIN
     Route: 065
     Dates: start: 20110817, end: 20110827
  6. KENACORT [Suspect]
     Indication: BACK PAIN
     Route: 065
     Dates: start: 20110817, end: 20110817
  7. LIDOCAINE [Suspect]
     Indication: BACK PAIN
     Route: 061
     Dates: start: 20110817, end: 20110817
  8. SIRDALUD [Suspect]
     Indication: BACK PAIN
     Route: 065
     Dates: start: 20110817, end: 201202
  9. LEXOTANIL [Suspect]
     Indication: PRODUCT USED FOR UNKNOWN INDICATION
     Route: 065
     Dates: start: 20110816, end: 20111001
  10. IRFEN [Suspect]
     Indication: BACK PAIN
     Route: 065
     Dates: start: 20110907, end: 201202
  11. TOLPERISONE  HYDROCHLORIDE [Concomitant]
     Indication: BACK PAIN
     Route: 065
     Dates: start: 20110817, end: 20110907

REACTIONS (2)
  - Pregnancy on oral contraceptive [Unknown]
  - Exposure during pregnancy [Recovered/Resolved]
